FAERS Safety Report 8031536-2 (Version None)
Quarter: 2012Q1

REPORT INFORMATION
  Report Type: 
  Country: None (occurrence: None)
  Receive Date: 20120109
  Receipt Date: 20111230
  Transmission Date: 20120608
  Serious: Yes (Hospitalization)
  Sender: FDA-Public Use
  Company Number: US-ASTRAZENECA-2010SE51455

PATIENT
  Age: 76 Year
  Sex: Female
  Weight: 62.1 kg

DRUGS (8)
  1. AMIODARONE HCL [Concomitant]
     Indication: CARDIAC DISORDER
  2. SEROQUEL [Suspect]
     Indication: ANXIETY
     Dosage: 25 MG 1 TABLET AM AND 2 TABLETS HS
     Route: 048
  3. PAIN MEDICATION [Concomitant]
     Indication: PAIN
  4. SEROQUEL [Suspect]
     Dosage: 25 MG TWO TIMES AND 25 MG AT BEDTIME
     Route: 048
  5. THYROID MEDICATION [Concomitant]
     Indication: THYROID DISORDER
  6. SEROQUEL [Suspect]
     Indication: DEPRESSION
     Dosage: 25 MG 1 TABLET AM AND 2 TABLETS HS
     Route: 048
  7. CRESTOR [Suspect]
     Indication: BLOOD CHOLESTEROL ABNORMAL
     Route: 048
  8. SEROQUEL [Suspect]
     Dosage: 25 MG TWO TIMES AND 25 MG AT BEDTIME
     Route: 048

REACTIONS (4)
  - SPINAL COLUMN STENOSIS [None]
  - MALAISE [None]
  - OFF LABEL USE [None]
  - SKIN DISORDER [None]
